FAERS Safety Report 15786350 (Version 1)
Quarter: 2019Q1

REPORT INFORMATION
  Report Type: Spontaneous
  Country: PT (occurrence: PT)
  Receive Date: 20190103
  Receipt Date: 20190103
  Transmission Date: 20190417
  Serious: Yes (Life-Threatening, Hospitalization, Other)
  Sender: FDA-Public Use
  Company Number: PT-ALEMBIC PHARMACUETICALS LIMITED-2018SCAL000976

PATIENT

DRUGS (1)
  1. LITHIUM CARBONATE. [Suspect]
     Active Substance: LITHIUM CARBONATE
     Indication: BIPOLAR DISORDER
     Dosage: 400 MG, TID FOR 8 YEARS

REACTIONS (10)
  - Hypernatraemia [Recovered/Resolved]
  - Antipsychotic drug level above therapeutic [Recovering/Resolving]
  - Mental status changes [Recovering/Resolving]
  - Polydipsia [Recovered/Resolved]
  - Abdominal pain [Recovered/Resolved]
  - Dehydration [Recovered/Resolved]
  - Constipation [Recovered/Resolved]
  - Nephrogenic diabetes insipidus [Recovering/Resolving]
  - Polyuria [Recovered/Resolved]
  - Altered state of consciousness [Recovering/Resolving]
